FAERS Safety Report 6411117-4 (Version None)
Quarter: 2009Q4

REPORT INFORMATION
  Report Type: 
  Country: None (occurrence: None)
  Receive Date: 20091022
  Receipt Date: 20091013
  Transmission Date: 20100525
  Serious: Yes (Hospitalization, Disabling)
  Sender: FDA-Public Use
  Company Number: AU-PFIZER INC-2009270060

PATIENT
  Age: 40 Year

DRUGS (2)
  1. CHAMPIX [Suspect]
     Indication: SMOKING CESSATION THERAPY
     Dosage: UNK, UNK
     Route: 048
  2. MILK THISTLE [Concomitant]
     Indication: ROUTINE HEALTH MAINTENANCE
     Route: 048

REACTIONS (9)
  - AMNESIA [None]
  - ANGER [None]
  - ANXIETY [None]
  - DISORIENTATION [None]
  - DRY MOUTH [None]
  - LETHARGY [None]
  - MOOD ALTERED [None]
  - RASH [None]
  - SALIVARY HYPERSECRETION [None]
